FAERS Safety Report 19261394 (Version 1)
Quarter: 2021Q2

REPORT INFORMATION
  Report Type: Spontaneous
  Country: VE (occurrence: VE)
  Receive Date: 20210515
  Receipt Date: 20210515
  Transmission Date: 20210717
  Serious: Yes (Other)
  Sender: FDA-Public Use
  Company Number: NVSC2021VE025573

PATIENT
  Sex: Male

DRUGS (1)
  1. GLIVEC [Suspect]
     Active Substance: IMATINIB MESYLATE
     Indication: CHRONIC MYELOID LEUKAEMIA
     Dosage: 400 MG (4 OF 100 MG)
     Route: 065

REACTIONS (7)
  - Gingival bleeding [Unknown]
  - White blood cell count increased [Unknown]
  - Mouth haemorrhage [Unknown]
  - Lip haemorrhage [Unknown]
  - Tongue haemorrhage [Unknown]
  - Chronic myeloid leukaemia [Unknown]
  - Platelet count decreased [Unknown]
